FAERS Safety Report 9483833 (Version 1)
Quarter: 2013Q3

REPORT INFORMATION
  Report Type: Report from Study
  Country: US (occurrence: US)
  Receive Date: 20130828
  Receipt Date: 20130828
  Transmission Date: 20140515
  Serious: Yes (Hospitalization)
  Sender: FDA-Public Use
  Company Number: US-TEVA-427982USA

PATIENT
  Age: 63 Year
  Sex: Male

DRUGS (1)
  1. COPAXONE [Suspect]
     Indication: MULTIPLE SCLEROSIS
     Dates: start: 20130627

REACTIONS (5)
  - Immediate post-injection reaction [Unknown]
  - Choking [Unknown]
  - Paralysis [Unknown]
  - Abasia [Unknown]
  - Adverse drug reaction [Unknown]
